FAERS Safety Report 4480884-1 (Version None)
Quarter: 2004Q4

REPORT INFORMATION
  Report Type: 
  Country: None (occurrence: None)
  Receive Date: 20041020
  Receipt Date: 20041020
  Transmission Date: 20050328
  Serious: Yes (Hospitalization)
  Sender: FDA-Public Use
  Company Number: None

PATIENT
  Age: 70 Year
  Sex: Male
  Weight: 68.2 kg

DRUGS (4)
  1. TRILEPTAL [Suspect]
     Indication: CONVULSION
     Dosage: 300 MG PO BID
     Route: 048
     Dates: start: 20040830, end: 20040909
  2. DILANTIN [Concomitant]
  3. ASPIRIN [Concomitant]
  4. INSULIN [Concomitant]

REACTIONS (3)
  - ASTHENIA [None]
  - HYPONATRAEMIA [None]
  - INAPPROPRIATE ANTIDIURETIC HORMONE SECRETION [None]
